FAERS Safety Report 7496277-9 (Version None)
Quarter: 2011Q2

REPORT INFORMATION
  Report Type: 
  Country: None (occurrence: None)
  Receive Date: 20110520
  Receipt Date: 20110520
  Transmission Date: 20111010
  Serious: Yes (Life-Threatening, Other)
  Sender: FDA-Public Use
  Company Number: None

PATIENT
  Sex: Female
  Weight: 77.1115 kg

DRUGS (1)
  1. DOXYLAMINE SUCCINATE [Suspect]
     Indication: INSOMNIA
     Dates: start: 20110217, end: 20110516

REACTIONS (1)
  - HEART RATE IRREGULAR [None]
